FAERS Safety Report 7612259-8 (Version None)
Quarter: 2011Q3

REPORT INFORMATION
  Report Type: 
  Country: None (occurrence: None)
  Receive Date: 20110715
  Receipt Date: 20110711
  Transmission Date: 20111222
  Serious: Yes (Death)
  Sender: FDA-Public Use
  Company Number: PHHY2011US61883

PATIENT
  Sex: Female

DRUGS (2)
  1. RECLAST [Suspect]
     Dosage: 5 MG, YEARLY
     Route: 042
     Dates: start: 20090701
  2. RECLAST [Suspect]
     Dosage: 5 MG, YEARLY
     Route: 042
     Dates: start: 20100920

REACTIONS (1)
  - BRAIN NEOPLASM [None]
